FAERS Safety Report 17802196 (Version 2)
Quarter: 2020Q2

REPORT INFORMATION
  Report Type: Spontaneous
  Country: US (occurrence: US)
  Receive Date: 20200519
  Receipt Date: 20200522
  Transmission Date: 20200714
  Serious: Yes (Other)
  Sender: FDA-Public Use
  Company Number: US-PFIZER INC-2020197800

PATIENT
  Age: 77 Year
  Sex: Male

DRUGS (11)
  1. EZETIMIBE. [Concomitant]
     Active Substance: EZETIMIBE
     Dosage: 10 MG
  2. NADOLOL. [Concomitant]
     Active Substance: NADOLOL
     Dosage: 20 MG
  3. IBRANCE [Suspect]
     Active Substance: PALBOCICLIB
     Indication: BREAST CANCER MALE
     Dosage: 125 MG, CYCLIC (DAILY 21 DAYS)
     Route: 048
     Dates: start: 2019
  4. AMLODIPINE BESILATE [Concomitant]
     Active Substance: AMLODIPINE BESYLATE
     Dosage: UNK (100% POWDER)
  5. COQ10 [UBIDECARENONE] [Concomitant]
     Active Substance: UBIDECARENONE
     Dosage: 50 MG
  6. FASLODEX [Concomitant]
     Active Substance: FULVESTRANT
     Dosage: UNK (250 MG/5ML)
  7. XARELTO [Concomitant]
     Active Substance: RIVAROXABAN
     Dosage: 10 MG
  8. FISH OIL [Concomitant]
     Active Substance: FISH OIL
     Dosage: UNK (100-150 MG)
  9. LORAZEPAM. [Concomitant]
     Active Substance: LORAZEPAM
     Dosage: 0.5 MG
  10. CHLORTHALIDONE. [Concomitant]
     Active Substance: CHLORTHALIDONE
     Dosage: 25 MG
  11. POTASSIUM CHLORIDE. [Concomitant]
     Active Substance: POTASSIUM CHLORIDE
     Dosage: UNK

REACTIONS (1)
  - Neutrophil count decreased [Unknown]
